FAERS Safety Report 23293150 (Version 1)
Quarter: 2023Q4

REPORT INFORMATION
  Report Type: Spontaneous
  Country: MX (occurrence: MX)
  Receive Date: 20231213
  Receipt Date: 20231213
  Transmission Date: 20240110
  Serious: Yes (Other)
  Sender: FDA-Public Use
  Company Number: MX-BAYER-2023A178979

PATIENT

DRUGS (2)
  1. NEXAVAR [Suspect]
     Active Substance: SORAFENIB
     Dosage: UNK
     Dates: start: 202309
  2. NEXAVAR [Suspect]
     Active Substance: SORAFENIB
     Dosage: UNK

REACTIONS (4)
  - Dermatosis [None]
  - Asthenia [None]
  - Palmar-plantar erythrodysaesthesia syndrome [None]
  - Stomatitis [None]
